FAERS Safety Report 6154168-X (Version None)
Quarter: 2009Q2

REPORT INFORMATION
  Report Type: 
  Country: None (occurrence: None)
  Receive Date: 20090414
  Receipt Date: 20090325
  Transmission Date: 20091009
  Serious: Yes (Other)
  Sender: FDA-Public Use
  Company Number: PHHY2009FR13672

PATIENT
  Age: 28 Year
  Sex: Female

DRUGS (1)
  1. BROMOCRIPTINE MESYLATE [Suspect]
     Dosage: UNK

REACTIONS (2)
  - ISCHAEMIC CEREBRAL INFARCTION [None]
  - PERIPHERAL ISCHAEMIA [None]
